FAERS Safety Report 4679558-3 (Version None)
Quarter: 2005Q2

REPORT INFORMATION
  Report Type: 
  Country: None (occurrence: None)
  Receive Date: 20050602
  Receipt Date: 20050526
  Transmission Date: 20051028
  Serious: Yes (Other)
  Sender: FDA-Public Use
  Company Number: 200514916GDDC

PATIENT
  Age: 38 Year
  Sex: Female
  Weight: 56 kg

DRUGS (2)
  1. METRONIDAZOLE [Suspect]
     Indication: TOOTH ABSCESS
     Route: 048
     Dates: start: 20050503, end: 20050507
  2. AMOXICILLIN [Concomitant]
     Indication: TOOTH ABSCESS
     Route: 048
     Dates: start: 20050429, end: 20050504

REACTIONS (3)
  - DYSGEUSIA [None]
  - FEELING DRUNK [None]
  - MUSCULOSKELETAL STIFFNESS [None]
